FAERS Safety Report 10622752 (Version 3)
Quarter: 2014Q4

REPORT INFORMATION
  Report Type: Spontaneous
  Country: US (occurrence: US)
  Receive Date: 20141203
  Receipt Date: 20141229
  Transmission Date: 20150529
  Serious: No
  Sender: FDA-Public Use
  Company Number: US-PFIZER INC-2014111883

PATIENT
  Age: 81 Year
  Sex: Female
  Weight: 60 kg

DRUGS (1)
  1. ADVIL [Suspect]
     Active Substance: IBUPROFEN
     Indication: CARDIAC DISORDER
     Dosage: UNK
     Dates: start: 2014

REACTIONS (3)
  - Poor quality drug administered [Unknown]
  - Intentional product misuse [Unknown]
  - Product commingling [Unknown]

NARRATIVE: CASE EVENT DATE: 2014
